FAERS Safety Report 5230130-6 (Version None)
Quarter: 2007Q1

REPORT INFORMATION
  Report Type: 
  Country: None (occurrence: None)
  Receive Date: 20070206
  Receipt Date: 20060731
  Transmission Date: 20070707
  Serious: No
  Sender: FDA-Public Use
  Company Number: US-GLAXOSMITHKLINE-A0614162A

PATIENT
  Age: 57 Year
  Sex: Female

DRUGS (2)
  1. PAXIL CR [Suspect]
     Indication: DEPRESSION
     Dosage: 6.25MG PER DAY
     Route: 048
     Dates: start: 20060728
  2. VALIUM [Concomitant]

REACTIONS (4)
  - DRUG ADMINISTRATION ERROR [None]
  - FEELING ABNORMAL [None]
  - INSOMNIA [None]
  - TREMOR [None]
